FAERS Safety Report 6035674-5 (Version None)
Quarter: 2009Q1

REPORT INFORMATION
  Report Type: 
  Country: None (occurrence: None)
  Receive Date: 20090112
  Receipt Date: 20090112
  Transmission Date: 20090719
  Serious: Yes (Hospitalization)
  Sender: FDA-Public Use
  Company Number: None

PATIENT
  Age: 84 Year
  Sex: Male

DRUGS (8)
  1. LISINOPRIL [Suspect]
     Indication: HYPERTENSION
     Dosage: 1 TABLET DAILY PO
     Route: 048
     Dates: start: 20021001, end: 20081104
  2. CLONIDINE [Concomitant]
  3. SIMVASTATIN [Concomitant]
  4. DONEPEZIL HCL [Concomitant]
  5. ESOMEPRAZOLE [Concomitant]
  6. SITAGLIPTIN [Concomitant]
  7. DILTIAZEM [Concomitant]
  8. METFORMIN [Concomitant]

REACTIONS (2)
  - PERIORBITAL OEDEMA [None]
  - SWELLING FACE [None]
